FAERS Safety Report 24453543 (Version 2)
Quarter: 2024Q4

REPORT INFORMATION
  Report Type: Report from Study
  Country: CA (occurrence: CA)
  Receive Date: 20241017
  Receipt Date: 20241018
  Transmission Date: 20250115
  Serious: No
  Sender: ROCHE
  Company Number: CA-ROCHE-3369199

PATIENT
  Sex: Male
  Weight: 84.3 kg

DRUGS (13)
  1. RITUXAN [Suspect]
     Active Substance: RITUXIMAB
     Indication: Overlap syndrome
     Dosage: DAY 1, 15
     Route: 042
     Dates: start: 20180821, end: 20230912
  2. CODEINE [Concomitant]
     Active Substance: CODEINE
     Route: 048
  3. FOLIC ACID [Concomitant]
     Active Substance: FOLIC ACID
  4. LANSOPRAZOLE [Concomitant]
     Active Substance: LANSOPRAZOLE
     Route: 048
  5. LEFLUNOMIDE [Concomitant]
     Active Substance: LEFLUNOMIDE
     Route: 048
  6. LIPITOR [Concomitant]
     Active Substance: ATORVASTATIN CALCIUM
     Route: 048
  7. METHOTREXATE [Concomitant]
     Active Substance: METHOTREXATE
  8. PREDNISONE [Concomitant]
     Active Substance: PREDNISONE
     Route: 048
  9. RISEDRONATE SODIUM [Concomitant]
     Active Substance: RISEDRONATE SODIUM
  10. SERTRALINE [Concomitant]
     Active Substance: SERTRALINE HYDROCHLORIDE
     Route: 048
  11. CALCIUM GLUCONATE [Concomitant]
     Active Substance: CALCIUM GLUCONATE
  12. BENADRYL [Concomitant]
     Active Substance: DIPHENHYDRAMINE HYDROCHLORIDE
     Route: 048
     Dates: start: 20230912
  13. TYLENOL [Concomitant]
     Active Substance: ACETAMINOPHEN
     Route: 048
     Dates: start: 20230912

REACTIONS (1)
  - Rheumatoid arthritis [Unknown]
